FAERS Safety Report 6760288-9 (Version None)
Quarter: 2010Q2

REPORT INFORMATION
  Report Type: 
  Country: None (occurrence: None)
  Receive Date: 20100604
  Receipt Date: 20100525
  Transmission Date: 20101027
  Serious: No
  Sender: FDA-Public Use
  Company Number: 009889

PATIENT
  Age: 70 Year
  Sex: Male

DRUGS (9)
  1. PLETAL [Suspect]
     Dosage: 100 MG, ORAL
     Route: 048
  2. ASPIRIN [Concomitant]
  3. MARCUMAR [Concomitant]
  4. RAMIPRIL [Concomitant]
  5. TORSEMIDE [Concomitant]
  6. NOVODIGAL (BISOPROLOL) [Concomitant]
  7. ALLOPURINOL [Concomitant]
  8. FENOFIBRATE [Concomitant]
  9. LEVOTHYROXINE SODIUM [Concomitant]

REACTIONS (3)
  - HAEMORRHAGE [None]
  - IRON DEFICIENCY [None]
  - MICROCYTIC ANAEMIA [None]
